FAERS Safety Report 16367854 (Version 1)
Quarter: 2019Q2

REPORT INFORMATION
  Report Type: Spontaneous
  Country: ES (occurrence: ES)
  Receive Date: 20190529
  Receipt Date: 20190529
  Transmission Date: 20190711
  Serious: Yes (Hospitalization)
  Sender: FDA-Public Use
  Company Number: ES-BAYER-2019-099049

PATIENT
  Age: 59 Year
  Sex: Male

DRUGS (3)
  1. NEXAVAR [Suspect]
     Active Substance: SORAFENIB
     Indication: HEPATIC CANCER
     Dosage: 200 MG
     Route: 048
     Dates: start: 20151213
  2. OXICODONA [OXYCODONE] [Suspect]
     Active Substance: OXYCODONE
     Indication: PAIN
     Dosage: 40 MG, UNK
     Route: 048
     Dates: start: 20180112, end: 20180321
  3. ZELDOX [Suspect]
     Active Substance: ZIPRASIDONE
     Indication: PRODUCT USED FOR UNKNOWN INDICATION
     Dosage: 40 MG,
     Route: 048
     Dates: start: 20171215, end: 20180321

REACTIONS (1)
  - Parotitis [Recovered/Resolved]

NARRATIVE: CASE EVENT DATE: 20180321
